FAERS Safety Report 7819186-1 (Version None)
Quarter: 2011Q4

REPORT INFORMATION
  Report Type: 
  Country: None (occurrence: None)
  Receive Date: 20111012
  Receipt Date: 20110930
  Transmission Date: 20120403
  Serious: Yes (Hospitalization, Other)
  Sender: FDA-Public Use
  Company Number: AUR-APL-2009-01420

PATIENT
  Age: 33 Year
  Sex: Male

DRUGS (2)
  1. SERTRALINE HYDROCHLORIDE [Suspect]
     Indication: SCHIZOPHRENIA
     Dosage: (50 MG, 1 D),
  2. RISPERIDONE [Suspect]
     Indication: SCHIZOPHRENIA
     Dosage: (2 MG, 1 D),

REACTIONS (4)
  - PNEUMOTHORAX [None]
  - RESPIRATORY FAILURE [None]
  - EOSINOPHILIC PNEUMONIA [None]
  - PULMONARY FIBROSIS [None]
